FAERS Safety Report 5556088-8 (Version None)
Quarter: 2007Q4

REPORT INFORMATION
  Report Type: 
  Country: None (occurrence: None)
  Receive Date: 20071213
  Receipt Date: 20071207
  Transmission Date: 20080405
  Serious: Yes (Other)
  Sender: FDA-Public Use
  Company Number: PHFR2007GB03370

PATIENT
  Age: 73 Year
  Sex: Female
  Weight: 50 kg

DRUGS (1)
  1. DESFERAL [Suspect]
     Dosage: 8G/4DAYS/WEEK
     Route: 065
     Dates: start: 20050101, end: 20070901

REACTIONS (2)
  - EXTRAOCULAR MUSCLE DISORDER [None]
  - MYOSITIS [None]
